FAERS Safety Report 9245253 (Version 2)
Quarter: 2013Q2

REPORT INFORMATION
  Report Type: Spontaneous
  Country: US (occurrence: US)
  Receive Date: 20130422
  Receipt Date: 20130611
  Transmission Date: 20140414
  Serious: No
  Sender: FDA-Public Use
  Company Number: US-PFIZER INC-2013122106

PATIENT
  Age: 25 Year
  Sex: Female
  Weight: 79.36 kg

DRUGS (6)
  1. LEVOXYL [Suspect]
     Indication: THYROID HORMONE REPLACEMENT THERAPY
     Dosage: 137 UG, 1X/DAY
     Route: 048
     Dates: start: 2008
  2. CYMBALTA [Concomitant]
     Indication: ANXIETY
     Dosage: 60 MG IN THE MORNING AND 30 MG AT NIGHT, 2X/DAY
  3. CYMBALTA [Concomitant]
     Indication: DEPRESSION
  4. XANAX XR [Concomitant]
     Indication: ANXIETY
     Dosage: 0.5MG IN THE MORNING AND 1MG AT NIGHT, 2X/DAY
  5. XANAX XR [Concomitant]
     Indication: PANIC ATTACK
  6. LOSEASONIQUE [Concomitant]
     Indication: CONTRACEPTION
     Dosage: UNK

REACTIONS (1)
  - Thyroid function test abnormal [Recovered/Resolved]
